FAERS Safety Report 8767544 (Version 1)
Quarter: 2012Q4

REPORT INFORMATION
  Report Type: 
  Country: FR (occurrence: FR)
  Receive Date: 20120904
  Receipt Date: 20120904
  Transmission Date: 20130627
  Serious: Yes (Other)
  Sender: FDA-Public Use
  Company Number: FR-ACTELION-A-CH2012-70768

PATIENT
  Age: 25 Month
  Sex: Female

DRUGS (1)
  1. ZAVESCA [Suspect]
     Indication: NIEMANN-PICK DISEASE
     Dosage: 200 mg, qd
     Route: 048

REACTIONS (5)
  - Enteral nutrition [Unknown]
  - Gastrostomy tube insertion [Unknown]
  - Demyelination [Unknown]
  - Condition aggravated [Unknown]
  - Niemann-Pick disease [Unknown]
